FAERS Safety Report 17833629 (Version 1)
Quarter: 2020Q2

REPORT INFORMATION
  Report Type: Spontaneous
  Country: ZA (occurrence: ZA)
  Receive Date: 20200528
  Receipt Date: 20200528
  Transmission Date: 20200714
  Serious: Yes (Disabling, Other)
  Sender: FDA-Public Use
  Company Number: ZA-009507513-2003ZAF009348

PATIENT
  Age: 35 Year
  Sex: Female

DRUGS (2)
  1. IMPLANON NXT [Suspect]
     Active Substance: ETONOGESTREL
     Dosage: EVERY 3 YEARS
     Route: 059
     Dates: start: 20200225, end: 20200319
  2. IMPLANON NXT [Suspect]
     Active Substance: ETONOGESTREL
     Indication: CONTRACEPTION
     Dosage: 1 DOSAGE FORM
     Route: 059
     Dates: end: 20200225

REACTIONS (3)
  - Pain [Recovered/Resolved]
  - Hypokinesia [Recovered/Resolved]
  - Implant site inflammation [Recovered/Resolved]

NARRATIVE: CASE EVENT DATE: 2020
